FAERS Safety Report 9607733 (Version 2)
Quarter: 2013Q4

REPORT INFORMATION
  Report Type: Report from Study
  Country: FR (occurrence: FR)
  Receive Date: 20131009
  Receipt Date: 20131206
  Transmission Date: 20140711
  Serious: Yes (Hospitalization)
  Sender: FDA-Public Use
  Company Number: FR-ASTELLAS-2013EU008515

PATIENT
  Age: 62 Year
  Sex: Male
  Weight: 64.5 kg

DRUGS (8)
  1. ADVAGRAF [Suspect]
     Indication: IMMUNOSUPPRESSION
     Dosage: 9 MG/DAY, UNKNOWN/D
     Route: 065
     Dates: start: 20130720
  2. ADVAGRAF [Suspect]
     Dosage: 3 MG, UNKNOWN/D
     Route: 065
  3. CELLCEPT [Concomitant]
     Indication: IMMUNOSUPPRESSION
     Dosage: UNK
     Route: 065
     Dates: start: 20130720
  4. PRAVASTATINE [Concomitant]
     Indication: DYSLIPIDAEMIA
     Dosage: UNK
     Route: 065
     Dates: start: 20130720
  5. CORTANCYL [Concomitant]
     Indication: PROPHYLAXIS AGAINST TRANSPLANT REJECTION
     Dosage: UNK
     Route: 065
     Dates: start: 20130721
  6. AMLOR [Concomitant]
     Indication: HYPERTENSION
     Dosage: UNK
     Route: 065
     Dates: start: 20130726
  7. TEMERIT [Concomitant]
     Indication: HYPERTENSION
     Dosage: UNK
     Route: 065
     Dates: start: 20130813
  8. ROVALCYTE [Concomitant]
     Indication: ANTIVIRAL PROPHYLAXIS
     Dosage: UNK
     Route: 065
     Dates: start: 20130822

REACTIONS (1)
  - Gastrointestinal disorder [Recovered/Resolved]
